FAERS Safety Report 19101118 (Version 3)
Quarter: 2021Q2

REPORT INFORMATION
  Report Type: Report from Study
  Country: MX (occurrence: MX)
  Receive Date: 20210407
  Receipt Date: 20210426
  Transmission Date: 20210717
  Serious: Yes (Hospitalization, Other)
  Sender: FDA-Public Use
  Company Number: NVSC2021MX076633

PATIENT
  Age: 56 Year
  Sex: Female
  Weight: 57 kg

DRUGS (1)
  1. ACLASTA [Suspect]
     Active Substance: ZOLEDRONIC ACID
     Indication: OSTEOPOROSIS PROPHYLAXIS
     Dosage: 1 DF (1 APPLICATION), Q12MO
     Route: 042
     Dates: start: 202001

REACTIONS (6)
  - Rheumatoid arthritis [Not Recovered/Not Resolved]
  - Sciatica [Not Recovered/Not Resolved]
  - Anaemia [Recovered/Resolved]
  - Weight decreased [Recovered/Resolved]
  - Cyst [Recovered/Resolved]
  - Pain [Recovering/Resolving]

NARRATIVE: CASE EVENT DATE: 202010
